FAERS Safety Report 10072105 (Version 2)
Quarter: 2014Q2

REPORT INFORMATION
  Report Type: Report from Study
  Country: JP (occurrence: JP)
  Receive Date: 20140411
  Receipt Date: 20140428
  Transmission Date: 20141212
  Serious: Yes (Hospitalization)
  Sender: FDA-Public Use
  Company Number: JP-ROCHE-1377467

PATIENT
  Age: 48 Year
  Sex: Female
  Weight: 58 kg

DRUGS (6)
  1. TRASTUZUMAB EMTANSINE [Suspect]
     Indication: BREAST CANCER METASTATIC
     Route: 042
     Dates: start: 20140130, end: 20140313
  2. EPL [Concomitant]
     Indication: HYPERLIPIDAEMIA
     Route: 048
  3. URINORM [Concomitant]
     Indication: HYPERURICAEMIA
     Route: 048
  4. PYDOXAL [Concomitant]
     Indication: PALMAR-PLANTAR ERYTHRODYSAESTHESIA SYNDROME
     Route: 048
  5. TRAMAL [Concomitant]
     Indication: CANCER PAIN
     Route: 048
  6. OLOPATADINE HYDROCHLORIDE [Concomitant]
     Indication: SEASONAL ALLERGY
     Route: 048
     Dates: start: 20140228

REACTIONS (1)
  - Cardiac failure congestive [Recovering/Resolving]
